FAERS Safety Report 9530036 (Version 5)
Quarter: 2014Q4

REPORT INFORMATION
  Report Type: Spontaneous
  Country: US (occurrence: US)
  Receive Date: 20130917
  Receipt Date: 20141208
  Transmission Date: 20150529
  Serious: Yes (Hospitalization, Other)
  Sender: FDA-Public Use
  Company Number: US-009507513-1309USA005418

PATIENT
  Sex: Female

DRUGS (5)
  1. FOSAMAX [Suspect]
     Active Substance: ALENDRONATE SODIUM
     Indication: OSTEOPOROSIS
     Dosage: 10 MG, UNK
     Route: 048
  2. CALCIUM (UNSPECIFIED) [Concomitant]
     Active Substance: CALCIUM
     Dosage: UNK, 1, QD
     Dates: start: 2000
  3. ALENDRONATE SODIUM. [Suspect]
     Active Substance: ALENDRONATE SODIUM
     Indication: OSTEOPOROSIS
     Dosage: 70 MG, UNK
     Route: 048
     Dates: start: 20080728, end: 20110505
  4. FOSAMAX [Suspect]
     Active Substance: ALENDRONATE SODIUM
     Dosage: 70 MG, UNK
     Route: 048
     Dates: start: 20000513, end: 20080727
  5. VITAMINS (UNSPECIFIED) [Concomitant]
     Active Substance: VITAMINS
     Dosage: UNK, 1, QD
     Dates: start: 2000

REACTIONS (18)
  - Anaemia [Unknown]
  - Intramedullary rod insertion [Unknown]
  - Low turnover osteopathy [Unknown]
  - Bone graft [Unknown]
  - Vision blurred [Unknown]
  - Osteonecrosis [Unknown]
  - Femur fracture [Unknown]
  - Thyroid operation [Unknown]
  - Hypothyroidism [Unknown]
  - Dyspnoea [Unknown]
  - Hypersensitivity [Unknown]
  - Calcium deficiency [Unknown]
  - Hypercholesterolaemia [Unknown]
  - Motion sickness [Unknown]
  - Skeletal traction [Unknown]
  - Femur fracture [Not Recovered/Not Resolved]
  - Cough [Unknown]
  - Inflammation [Unknown]

NARRATIVE: CASE EVENT DATE: 2000
